FAERS Safety Report 8065687-3 (Version None)
Quarter: 2012Q1

REPORT INFORMATION
  Report Type: 
  Country: None (occurrence: None)
  Receive Date: 20120117
  Receipt Date: 20120109
  Transmission Date: 20120608
  Serious: Yes (Death)
  Sender: FDA-Public Use
  Company Number: 2012MA000508

PATIENT
  Age: 29 Year
  Sex: Male

DRUGS (5)
  1. SOLU-MEDROL [Concomitant]
  2. IRINOTECAN HYDROCHLORIDE [Suspect]
     Indication: NEOPLASM PROGRESSION
     Dosage: 10 MG/KG;QOW;IV
     Route: 042
  3. BEVACIZUMAB [Concomitant]
  4. CARMUSTINE [Concomitant]
  5. TEMOZOLOMIDE [Concomitant]

REACTIONS (3)
  - SKIN STRIAE [None]
  - DRUG INEFFECTIVE [None]
  - SKIN NECROSIS [None]
